FAERS Safety Report 17272918 (Version 1)
Quarter: 2020Q1

REPORT INFORMATION
  Report Type: Spontaneous
  Country: CA (occurrence: CA)
  Receive Date: 20200115
  Receipt Date: 20200115
  Transmission Date: 20200409
  Serious: Yes (Hospitalization, Disabling, Other)
  Sender: FDA-Public Use
  Company Number: None

PATIENT
  Age: 73 Year
  Sex: Female
  Weight: 54 kg

DRUGS (11)
  1. HYDROCHLOROTHIAZIDE. [Concomitant]
     Active Substance: HYDROCHLOROTHIAZIDE
  2. MAGNESIUM CITRATE. [Concomitant]
     Active Substance: MAGNESIUM CITRATE
  3. PROBIOTICS [Concomitant]
     Active Substance: PROBIOTICS NOS
  4. CHOLESTYRAMINE. [Concomitant]
     Active Substance: CHOLESTYRAMINE
  5. FERRIS FUMURATE [Concomitant]
  6. PARIET [Suspect]
     Active Substance: RABEPRAZOLE SODIUM
  7. METOPROLOL 25MG [Concomitant]
     Active Substance: METOPROLOL
  8. TRAMACET 34.5/325 [Concomitant]
  9. PREMARIN 1.25MG [Concomitant]
  10. LANSOPRAZOLE. [Suspect]
     Active Substance: LANSOPRAZOLE
     Indication: GASTROOESOPHAGEAL REFLUX DISEASE
     Dosage: ?          QUANTITY:1 CAPSULE(S);?
     Route: 048
  11. IRBESRTAN 75 MG [Concomitant]

REACTIONS (2)
  - Diarrhoea [None]
  - Electrolyte imbalance [None]

NARRATIVE: CASE EVENT DATE: 20180520
